FAERS Safety Report 8567340-6 (Version None)
Quarter: 2012Q3

REPORT INFORMATION
  Report Type: 
  Country: None (occurrence: None)
  Receive Date: 20120803
  Receipt Date: 20120208
  Transmission Date: 20120928
  Serious: Yes (Hospitalization)
  Sender: FDA-Public Use
  Company Number: US-ABBOTT-11P-163-0855442-00

PATIENT
  Sex: Male
  Weight: 109.87 kg

DRUGS (5)
  1. PRAVASTATIN [Concomitant]
     Indication: PRODUCT USED FOR UNKNOWN INDICATION
  2. NIASPAN [Suspect]
     Indication: CORONARY ARTERY DISEASE
     Dosage: ONE MONTH OF OFFICE SAMPLES
     Route: 048
     Dates: end: 20110301
  3. NIASPAN [Suspect]
     Indication: HYPERLIPIDAEMIA
     Dosage: FILLED PRESCIPTION - TOOK ONE DOSE
     Route: 048
     Dates: start: 20110301, end: 20110301
  4. ASPIRIN [Concomitant]
     Indication: PRODUCT USED FOR UNKNOWN INDICATION
  5. NIASPAN [Suspect]
     Indication: BLOOD TRIGLYCERIDES

REACTIONS (4)
  - ANAPHYLACTOID REACTION [None]
  - THROAT TIGHTNESS [None]
  - FLUSHING [None]
  - DYSPNOEA [None]
